FAERS Safety Report 6718342-3 (Version None)
Quarter: 2010Q2

REPORT INFORMATION
  Report Type: 
  Country: None (occurrence: None)
  Receive Date: 20100505
  Receipt Date: 20100422
  Transmission Date: 20101027
  Serious: Yes (Congenital Anomaly)
  Sender: FDA-Public Use
  Company Number: 167-20484-09090440

PATIENT
  Sex: Male
  Weight: 3.084 kg

DRUGS (3)
  1. INNOHEP [Suspect]
     Indication: DRUG EXPOSURE DURING PREGNANCY
     Dosage: TRANSPLACENTAL
     Route: 064
     Dates: start: 20070521, end: 20071006
  2. FERROUS SULFATE TAB [Concomitant]
  3. ANTIBIOTICS (ANITBIOTICS) [Concomitant]

REACTIONS (5)
  - APGAR SCORE LOW [None]
  - CONGENITAL ANOMALY [None]
  - MATERNAL DRUGS AFFECTING FOETUS [None]
  - POLYDACTYLY [None]
  - RESPIRATORY DISORDER NEONATAL [None]
